FAERS Safety Report 25894405 (Version 4)
Quarter: 2025Q4

REPORT INFORMATION
  Report Type: Report from Study
  Country: US (occurrence: US)
  Receive Date: 20251008
  Receipt Date: 20251224
  Transmission Date: 20260118
  Serious: Yes (Hospitalization, Other)
  Sender: TAKEDA
  Company Number: US-TAKEDA-2025TUS087300

PATIENT
  Age: 88 Year
  Sex: Male

DRUGS (3)
  1. IXAZOMIB [Suspect]
     Active Substance: IXAZOMIB
     Indication: Plasma cell myeloma in remission
     Dosage: 2.3 MILLIGRAM
  2. IXAZOMIB [Suspect]
     Active Substance: IXAZOMIB
     Dosage: 2.3 MILLIGRAM
  3. DARZALEX [Suspect]
     Active Substance: DARATUMUMAB
     Indication: Plasma cell myeloma in remission
     Dosage: UNK UNK, 1/WEEK

REACTIONS (10)
  - Compression fracture [Unknown]
  - Plasma cell myeloma recurrent [Unknown]
  - Asthenia [Unknown]
  - Fatigue [Unknown]
  - Full blood count abnormal [Unknown]
  - Dysphagia [Unknown]
  - Diarrhoea [Unknown]
  - Anxiety [Unknown]
  - Pain [Unknown]
  - Feeling jittery [Unknown]

NARRATIVE: CASE EVENT DATE: 20250901
